FAERS Safety Report 7100307-3 (Version None)
Quarter: 2010Q4

REPORT INFORMATION
  Report Type: 
  Country: None (occurrence: None)
  Receive Date: 20101112
  Receipt Date: 20101105
  Transmission Date: 20110411
  Serious: Yes (Hospitalization)
  Sender: FDA-Public Use
  Company Number: BE-GILEAD-2010-0032772

PATIENT
  Sex: Male
  Weight: 59 kg

DRUGS (3)
  1. ATRIPLA [Suspect]
     Indication: HIV INFECTION
     Route: 048
     Dates: start: 20100701
  2. COMBIVIR [Concomitant]
  3. NEVIRAPINE [Concomitant]

REACTIONS (2)
  - PARANOIA [None]
  - SCHIZOPHRENIA [None]
